FAERS Safety Report 19755756 (Version 2)
Quarter: 2021Q3

REPORT INFORMATION
  Report Type: Report from Study
  Country: ES (occurrence: ES)
  Receive Date: 20210827
  Receipt Date: 20210930
  Transmission Date: 20211014
  Serious: Yes (Other)
  Sender: FDA-Public Use
  Company Number: ES-AKCEA THERAPEUTICS, INC.-2021IS001477

PATIENT
  Age: 67 Year
  Sex: Female

DRUGS (7)
  1. IXIA [Concomitant]
     Active Substance: OLMESARTAN MEDOXOMIL
     Route: 048
  2. EUTIROX [Concomitant]
     Active Substance: LEVOTHYROXINE SODIUM
     Route: 048
  3. OMEPRAZOL /00661201/ [Concomitant]
     Active Substance: OMEPRAZOLE
     Route: 048
  4. TEGSEDI [Suspect]
     Active Substance: INOTERSEN SODIUM
     Route: 058
     Dates: start: 20210611
  5. TEGSEDI [Suspect]
     Active Substance: INOTERSEN SODIUM
     Indication: AMYLOIDOSIS
     Route: 058
  6. FOSTER /00500401/ [Concomitant]
     Active Substance: PIROXICAM
  7. ISSD (INTEGRATED SYRINGE SAFETY DEVICE) [Suspect]
     Active Substance: DEVICE

REACTIONS (24)
  - Secretion discharge [Unknown]
  - Cough [Unknown]
  - Blood lactate dehydrogenase increased [Unknown]
  - Protein urine present [Unknown]
  - Haemoglobin decreased [Unknown]
  - Feeling cold [Recovering/Resolving]
  - Body temperature increased [Recovered/Resolved]
  - Pollakiuria [Recovered/Resolved]
  - Red blood cell count abnormal [Unknown]
  - Depressed mood [Not Recovered/Not Resolved]
  - Influenza [Unknown]
  - Fatigue [Unknown]
  - Blood potassium increased [Unknown]
  - Pain in extremity [Not Recovered/Not Resolved]
  - Abdominal pain upper [Recovered/Resolved]
  - Feeling abnormal [Recovered/Resolved]
  - Chills [Recovered/Resolved]
  - Nasopharyngitis [Unknown]
  - Blood creatinine increased [Unknown]
  - Haematocrit decreased [Unknown]
  - Malaise [Unknown]
  - pH urine increased [Unknown]
  - Aphonia [Unknown]
  - Blood urea abnormal [Unknown]

NARRATIVE: CASE EVENT DATE: 20210604
